FAERS Safety Report 4395476-2 (Version None)
Quarter: 2004Q3

REPORT INFORMATION
  Report Type: 
  Country: None (occurrence: None)
  Receive Date: 20040708
  Receipt Date: 20040630
  Transmission Date: 20050211
  Serious: Yes (Death)
  Sender: FDA-Public Use
  Company Number: 2004212035US

PATIENT
  Age: 45 Year
  Sex: Female
  Weight: 100.7 kg

DRUGS (2)
  1. XANAX [Suspect]
  2. METHADONE HCL [Suspect]

REACTIONS (9)
  - ADHESION [None]
  - CARDIOMEGALY [None]
  - DRUG TOXICITY [None]
  - HEPATOMEGALY [None]
  - HYPERTENSION [None]
  - NEPHROSCLEROSIS [None]
  - PIGMENTATION DISORDER [None]
  - PULMONARY CONGESTION [None]
  - PULMONARY OEDEMA [None]
